FAERS Safety Report 25913866 (Version 1)
Quarter: 2025Q4

REPORT INFORMATION
  Report Type: Spontaneous
  Country: EU (occurrence: EU)
  Receive Date: 20251013
  Receipt Date: 20251013
  Transmission Date: 20260118
  Serious: Yes (Death)
  Sender: MYLAN
  Company Number: None

PATIENT
  Age: 28 Year
  Sex: Male

DRUGS (28)
  1. ALPRAZOLAM [Suspect]
     Active Substance: ALPRAZOLAM
     Indication: Product used for unknown indication
     Dosage: UNK
  2. ALPRAZOLAM [Suspect]
     Active Substance: ALPRAZOLAM
     Dosage: UNK
     Route: 065
  3. ALPRAZOLAM [Suspect]
     Active Substance: ALPRAZOLAM
     Dosage: UNK
     Route: 065
  4. ALPRAZOLAM [Suspect]
     Active Substance: ALPRAZOLAM
     Dosage: UNK
  5. OXAZEPAM [Suspect]
     Active Substance: OXAZEPAM
     Indication: Product used for unknown indication
     Dosage: UNK
  6. OXAZEPAM [Suspect]
     Active Substance: OXAZEPAM
     Dosage: UNK
     Route: 065
  7. OXAZEPAM [Suspect]
     Active Substance: OXAZEPAM
     Dosage: UNK
     Route: 065
  8. OXAZEPAM [Suspect]
     Active Substance: OXAZEPAM
     Dosage: UNK
  9. COCAINE [Suspect]
     Active Substance: COCAINE
     Indication: Product used for unknown indication
     Dosage: UNK
  10. COCAINE [Suspect]
     Active Substance: COCAINE
     Dosage: UNK
     Route: 065
  11. COCAINE [Suspect]
     Active Substance: COCAINE
     Dosage: UNK
     Route: 065
  12. COCAINE [Suspect]
     Active Substance: COCAINE
     Dosage: UNK
  13. METHADONE [Suspect]
     Active Substance: METHADONE HYDROCHLORIDE
     Indication: Product used for unknown indication
     Dosage: UNK
  14. METHADONE [Suspect]
     Active Substance: METHADONE HYDROCHLORIDE
     Dosage: UNK
     Route: 065
  15. METHADONE [Suspect]
     Active Substance: METHADONE HYDROCHLORIDE
     Dosage: UNK
     Route: 065
  16. METHADONE [Suspect]
     Active Substance: METHADONE HYDROCHLORIDE
     Dosage: UNK
  17. MORPHINE [Suspect]
     Active Substance: MORPHINE
     Indication: Product used for unknown indication
     Dosage: UNK
  18. MORPHINE [Suspect]
     Active Substance: MORPHINE
     Dosage: UNK
     Route: 065
  19. MORPHINE [Suspect]
     Active Substance: MORPHINE
     Dosage: UNK
     Route: 065
  20. MORPHINE [Suspect]
     Active Substance: MORPHINE
     Dosage: UNK
  21. CITALOPRAM HYDROCHLORIDE [Suspect]
     Active Substance: CITALOPRAM HYDROCHLORIDE
     Indication: Product used for unknown indication
     Dosage: UNK
  22. CITALOPRAM HYDROCHLORIDE [Suspect]
     Active Substance: CITALOPRAM HYDROCHLORIDE
     Dosage: UNK
     Route: 065
  23. CITALOPRAM HYDROCHLORIDE [Suspect]
     Active Substance: CITALOPRAM HYDROCHLORIDE
     Dosage: UNK
     Route: 065
  24. CITALOPRAM HYDROCHLORIDE [Suspect]
     Active Substance: CITALOPRAM HYDROCHLORIDE
     Dosage: UNK
  25. ALCOHOL (ALCOHOL) [Suspect]
     Active Substance: ALCOHOL
     Indication: Product used for unknown indication
     Dosage: DRINK
  26. ALCOHOL (ALCOHOL) [Suspect]
     Active Substance: ALCOHOL
     Dosage: DRINK
     Route: 065
  27. ALCOHOL (ALCOHOL) [Suspect]
     Active Substance: ALCOHOL
     Dosage: DRINK
     Route: 065
  28. ALCOHOL (ALCOHOL) [Suspect]
     Active Substance: ALCOHOL
     Dosage: DRINK

REACTIONS (1)
  - Death [Fatal]

NARRATIVE: CASE EVENT DATE: 20250501
